FAERS Safety Report 8951620 (Version 1)
Quarter: 2012Q4

REPORT INFORMATION
  Report Type: 
  Country: VE (occurrence: VE)
  Receive Date: 20121204
  Receipt Date: 20121204
  Transmission Date: 20130627
  Serious: Yes (Other)
  Sender: FDA-Public Use
  Company Number: VE-ROCHE-1163926

PATIENT
  Age: 72 Year
  Sex: Female

DRUGS (2)
  1. LUCENTIS [Suspect]
     Indication: RETINOPATHY
     Route: 050
     Dates: start: 201012
  2. COSOPT [Suspect]
     Indication: PRODUCT USED FOR UNKNOWN INDICATION
     Route: 047
     Dates: start: 2010

REACTIONS (8)
  - Retinopathy [Unknown]
  - Eye colour change [Unknown]
  - Vomiting [Unknown]
  - Eye disorder [Unknown]
  - Asthenopia [Unknown]
  - Eye pain [Unknown]
  - Lacrimation increased [Unknown]
  - Eye pruritus [Unknown]
